FAERS Safety Report 12350430 (Version 1)
Quarter: 2016Q2

REPORT INFORMATION
  Report Type: Spontaneous
  Country: None (occurrence: None)
  Receive Date: 20160509
  Receipt Date: 20160509
  Transmission Date: 20160815
  Serious: Yes (Other)
  Sender: FDA-Public Use
  Company Number: None

PATIENT
  Age: 26 Year
  Sex: Female
  Weight: 70 kg

DRUGS (1)
  1. XENICAL [Suspect]
     Active Substance: ORLISTAT
     Indication: WEIGHT ABNORMAL
     Dosage: EVERY 8 HOURS
     Route: 048
     Dates: start: 20160329, end: 20160501

REACTIONS (5)
  - Depression [None]
  - Crying [None]
  - Fatigue [None]
  - Antisocial behaviour [None]
  - Feelings of worthlessness [None]

NARRATIVE: CASE EVENT DATE: 20160501
